FAERS Safety Report 9652848 (Version 1)
Quarter: 2013Q4

REPORT INFORMATION
  Report Type: Spontaneous
  Country: FR (occurrence: FR)
  Receive Date: 20131029
  Receipt Date: 20131029
  Transmission Date: 20140711
  Serious: Yes (Hospitalization)
  Sender: FDA-Public Use
  Company Number: FR-PFIZER INC-2013304045

PATIENT
  Age: 33 Year
  Sex: Male
  Weight: 90 kg

DRUGS (3)
  1. LYRICA [Suspect]
     Indication: DYSAESTHESIA
     Dosage: 25 MG, 2X/DAY
     Route: 048
     Dates: start: 20130722
  2. LYRICA [Suspect]
     Dosage: 75 MG, 2X/DAY
     Route: 048
     Dates: end: 20131013
  3. BACLOFEN [Concomitant]
     Dosage: TWICE PER DAY
     Dates: start: 20130819, end: 20131003

REACTIONS (4)
  - Overdose [Unknown]
  - Convulsion [Recovered/Resolved]
  - Pain [Unknown]
  - Phantom pain [Unknown]
